FAERS Safety Report 21052274 (Version 1)
Quarter: 2022Q3

REPORT INFORMATION
  Report Type: Report from Study
  Country: US (occurrence: US)
  Receive Date: 20220707
  Receipt Date: 20220707
  Transmission Date: 20221026
  Serious: Yes (Other)
  Sender: FDA-Public Use
  Company Number: US-MYLANLABS-2022M1050887

PATIENT
  Age: 23 Year
  Sex: Male

DRUGS (6)
  1. DOXYCYCLINE [Suspect]
     Active Substance: DOXYCYCLINE
     Indication: Urethritis mycoplasmal
     Dosage: UNK
     Route: 065
  2. DOXYCYCLINE [Suspect]
     Active Substance: DOXYCYCLINE
     Indication: Trichomoniasis
  3. CEFIXIME [Suspect]
     Active Substance: CEFIXIME
     Indication: Urethritis mycoplasmal
     Dosage: UNK
     Route: 065
  4. CEFIXIME [Suspect]
     Active Substance: CEFIXIME
     Indication: Trichomoniasis
  5. METRONIDAZOLE [Suspect]
     Active Substance: METRONIDAZOLE
     Indication: Urethritis mycoplasmal
     Dosage: UNK
     Route: 065
  6. METRONIDAZOLE [Suspect]
     Active Substance: METRONIDAZOLE
     Indication: Trichomoniasis

REACTIONS (1)
  - Drug ineffective [Unknown]
